FAERS Safety Report 4605209-X (Version None)
Quarter: 2005Q1

REPORT INFORMATION
  Report Type: 
  Country: None (occurrence: None)
  Receive Date: 20050310
  Receipt Date: 20050310
  Transmission Date: 20050727
  Serious: No
  Sender: FDA-Public Use
  Company Number: None

PATIENT
  Age: 84 Year
  Sex: Male

DRUGS (1)
  1. TIMENTIN [Suspect]
     Dosage: 2 GRAMS Q 8 H IV
     Route: 042
     Dates: start: 20041014, end: 20041014

REACTIONS (6)
  - CHILLS [None]
  - COMA [None]
  - HYPERHIDROSIS [None]
  - MUSCULOSKELETAL STIFFNESS [None]
  - TACHYPNOEA [None]
  - TREMOR [None]
